FAERS Safety Report 11778992 (Version 1)
Quarter: 2015Q4

REPORT INFORMATION
  Report Type: Spontaneous
  Country: DE (occurrence: DE)
  Receive Date: 20151125
  Receipt Date: 20151125
  Transmission Date: 20160304
  Serious: Yes (Life-Threatening)
  Sender: FDA-Public Use
  Company Number: DE-ELI_LILLY_AND_COMPANY-DE201511007972

PATIENT
  Age: 59 Year
  Sex: Female

DRUGS (13)
  1. OXYGESIC [Suspect]
     Active Substance: OXYCODONE
     Indication: PRODUCT USED FOR UNKNOWN INDICATION
     Dosage: 15 MG, BID
     Route: 065
  2. OXYGESIC [Suspect]
     Active Substance: OXYCODONE
     Dosage: 20 MG, QD
     Route: 065
  3. CYMBALTA [Suspect]
     Active Substance: DULOXETINE HYDROCHLORIDE
     Indication: PRODUCT USED FOR UNKNOWN INDICATION
     Dosage: 120 MG, UNKNOWN
     Route: 048
  4. METOCLOPRAMID                      /00041901/ [Concomitant]
     Dosage: 15 GTT, TID
     Route: 065
  5. REMERGIL [Suspect]
     Active Substance: MIRTAZAPINE
     Indication: PRODUCT USED FOR UNKNOWN INDICATION
     Dosage: 30 MG, UNKNOWN
     Route: 048
  6. IBUPROFEN. [Concomitant]
     Active Substance: IBUPROFEN
     Dosage: 400 MG, UNKNOWN
     Route: 065
  7. SIMVASTATIN MEPHA [Concomitant]
     Dosage: UNK, UNKNOWN
     Route: 065
  8. PANTOPRAZOL ABZ PROTECT [Concomitant]
     Active Substance: PANTOPRAZOLE SODIUM
     Dosage: UNK, UNKNOWN
     Route: 065
  9. BALDRIAN-DISPERT [Concomitant]
     Dosage: UNK, UNKNOWN
     Route: 065
  10. TORASEMID [Concomitant]
     Active Substance: TORSEMIDE
     Dosage: 2.5 MG, UNKNOWN
     Route: 065
  11. ACETYLSALICYLSAEURE [Concomitant]
     Active Substance: ASPIRIN
     Dosage: 100 MG, UNKNOWN
     Route: 065
  12. RAMIPRIL. [Concomitant]
     Active Substance: RAMIPRIL
     Dosage: 2.5 DF, UNKNOWN
     Route: 065
  13. BISOPROLOL [Concomitant]
     Active Substance: BISOPROLOL
     Dosage: 2.5 MG, BID
     Route: 065

REACTIONS (1)
  - Cardiac arrest [Recovered/Resolved]

NARRATIVE: CASE EVENT DATE: 20140109
